FAERS Safety Report 7369670-2 (Version None)
Quarter: 2011Q1

REPORT INFORMATION
  Report Type: 
  Country: None (occurrence: None)
  Receive Date: 20110323
  Receipt Date: 20110317
  Transmission Date: 20110831
  Serious: Yes (Hospitalization, Other)
  Sender: FDA-Public Use
  Company Number: US-BRISTOL-MYERS SQUIBB COMPANY-13944517

PATIENT
  Age: 63 Year
  Sex: Female
  Weight: 82 kg

DRUGS (11)
  1. METOPROLOL [Concomitant]
  2. SAPHRIS [Concomitant]
  3. FLEXERIL [Concomitant]
  4. LIPITOR [Concomitant]
  5. NEURONTIN [Concomitant]
  6. ABILIFY [Suspect]
     Indication: DEPRESSION
     Dosage: STARTED 7 YEARS AGO, TOOK FOR 5 YEARS
     Dates: end: 20070101
  7. OXYBUTYNIN [Concomitant]
  8. LASIX [Concomitant]
  9. ELAVIL [Concomitant]
  10. ATARAX [Concomitant]
  11. LEXAPRO [Suspect]
     Indication: DEPRESSION

REACTIONS (10)
  - TEETH BRITTLE [None]
  - ARTHRALGIA [None]
  - DYSKINESIA [None]
  - ARTHRITIS [None]
  - FIBROMYALGIA [None]
  - BACK PAIN [None]
  - TOOTH LOSS [None]
  - MANIA [None]
  - DIPLOPIA [None]
  - SPINAL COLUMN STENOSIS [None]
